FAERS Safety Report 18825694 (Version 1)
Quarter: 2021Q1

REPORT INFORMATION
  Report Type: Spontaneous
  Country: US (occurrence: US)
  Receive Date: 20210202
  Receipt Date: 20210202
  Transmission Date: 20210419
  Serious: No
  Sender: FDA-Public Use
  Company Number: US-PFIZER INC-2021077675

PATIENT
  Age: 62 Year

DRUGS (1)
  1. PRISTIQ EXTENDED?RELEASE [Suspect]
     Active Substance: DESVENLAFAXINE SUCCINATE
     Dosage: UNK
     Dates: end: 202101

REACTIONS (4)
  - Insomnia [Not Recovered/Not Resolved]
  - Feeling abnormal [Not Recovered/Not Resolved]
  - Crying [Not Recovered/Not Resolved]
  - Laziness [Not Recovered/Not Resolved]

NARRATIVE: CASE EVENT DATE: 202101
